FAERS Safety Report 4958663-8 (Version None)
Quarter: 2006Q1

REPORT INFORMATION
  Report Type: 
  Country: None (occurrence: None)
  Receive Date: 20060330
  Receipt Date: 20050406
  Transmission Date: 20060701
  Serious: Yes (Hospitalization)
  Sender: FDA-Public Use
  Company Number: US-MERCK-0504USA01107

PATIENT
  Age: 58 Year
  Sex: Male
  Weight: 73 kg

DRUGS (2)
  1. VIOXX [Suspect]
     Indication: MUSCLE INJURY
     Route: 048
     Dates: start: 20030328, end: 20030404
  2. VIOXX [Suspect]
     Indication: INFLAMMATION
     Route: 048
     Dates: start: 20030328, end: 20030404

REACTIONS (21)
  - ANAEMIA [None]
  - ANXIETY [None]
  - BARRETT'S OESOPHAGUS [None]
  - COLITIS [None]
  - CONSTIPATION [None]
  - CORONARY ARTERY DISEASE [None]
  - CORONARY ARTERY RESTENOSIS [None]
  - CORONARY ARTERY THROMBOSIS [None]
  - DYSSOMNIA [None]
  - EYE DISORDER [None]
  - HAEMATOMA [None]
  - HYPERTENSION [None]
  - LIVER FUNCTION TEST ABNORMAL [None]
  - MITRAL VALVE PROLAPSE [None]
  - MUSCLE RUPTURE [None]
  - MYOCARDIAL INFARCTION [None]
  - NECK PAIN [None]
  - PYREXIA [None]
  - SLEEP APNOEA SYNDROME [None]
  - SLEEP DISORDER [None]
  - SYNCOPE VASOVAGAL [None]
